FAERS Safety Report 8617707 (Version 2)
Quarter: 2014Q3

REPORT INFORMATION
  Report Type: Spontaneous
  Country: US (occurrence: US)
  Receive Date: 20120615
  Receipt Date: 20140806
  Transmission Date: 20150326
  Serious: Yes (Hospitalization)
  Sender: FDA-Public Use
  Company Number: US-GLAXOSMITHKLINE-A0874929A

PATIENT
  Sex: Male
  Weight: 93 kg

DRUGS (5)
  1. LIPITOR [Concomitant]
     Active Substance: ATORVASTATIN CALCIUM
  2. AMARYL [Concomitant]
     Active Substance: GLIMEPIRIDE
  3. AVANDIA [Suspect]
     Active Substance: ROSIGLITAZONE MALEATE
     Indication: DIABETES MELLITUS
     Route: 048
     Dates: start: 200202, end: 200509
  4. TOPROL XL [Concomitant]
     Active Substance: METOPROLOL SUCCINATE
  5. METFORMIN [Concomitant]
     Active Substance: METFORMIN HYDROCHLORIDE

REACTIONS (5)
  - Angina unstable [Not Recovered/Not Resolved]
  - Transient ischaemic attack [Unknown]
  - Acute coronary syndrome [Unknown]
  - Cerebrovascular accident [Unknown]
  - Coronary artery disease [Unknown]
